FAERS Safety Report 6678227-8 (Version None)
Quarter: 2010Q2

REPORT INFORMATION
  Report Type: 
  Country: None (occurrence: None)
  Receive Date: 20100408
  Receipt Date: 20100408
  Transmission Date: 20101027
  Serious: No
  Sender: FDA-Public Use
  Company Number: None

PATIENT
  Age: 20 Year
  Sex: Female
  Weight: 65.7716 kg

DRUGS (1)
  1. PAXIL [Suspect]
     Dosage: ONCE DAILY PO
     Route: 048
     Dates: start: 19991201, end: 19991220

REACTIONS (5)
  - CONSTIPATION [None]
  - DISCOMFORT [None]
  - IRRITABLE BOWEL SYNDROME [None]
  - MUSCLE SPASMS [None]
  - NAUSEA [None]
